FAERS Safety Report 4752996-6 (Version None)
Quarter: 2005Q3

REPORT INFORMATION
  Report Type: 
  Country: None (occurrence: None)
  Receive Date: 20050826
  Receipt Date: 20050505
  Transmission Date: 20060218
  Serious: Yes (Hospitalization)
  Sender: FDA-Public Use
  Company Number: US-MERCK-0505USA00768

PATIENT
  Age: 59 Year
  Sex: Female
  Weight: 91 kg

DRUGS (7)
  1. VIOXX [Suspect]
     Indication: RHEUMATOID ARTHRITIS
     Route: 048
     Dates: start: 20020627, end: 20030701
  2. UNIRETIC [Concomitant]
     Indication: HYPERTENSION
     Route: 065
     Dates: start: 20011001, end: 20030401
  3. TYLENOL [Concomitant]
     Route: 065
     Dates: start: 19950101
  4. GLIPIZIDE [Concomitant]
     Route: 065
     Dates: start: 20000922
  5. METFORMIN [Concomitant]
     Route: 065
     Dates: start: 20020208
  6. PREDNISONE [Concomitant]
     Route: 065
     Dates: start: 19980712
  7. ZOLOFT [Concomitant]
     Route: 065
     Dates: start: 20020726

REACTIONS (28)
  - ACUTE MYOCARDIAL INFARCTION [None]
  - ANAEMIA [None]
  - ANGINA UNSTABLE [None]
  - ARTHROPATHY [None]
  - ATHEROSCLEROSIS [None]
  - ATRIAL FIBRILLATION [None]
  - BLOOD LACTATE DEHYDROGENASE INCREASED [None]
  - BLOOD PRESSURE DECREASED [None]
  - BLOOD TRIGLYCERIDES INCREASED [None]
  - BUNDLE BRANCH BLOCK RIGHT [None]
  - CARDIAC FAILURE CONGESTIVE [None]
  - CARDIOACTIVE DRUG LEVEL INCREASED [None]
  - CHEST PAIN [None]
  - CORONARY ARTERY DISEASE [None]
  - DEPRESSION [None]
  - DYSPEPSIA [None]
  - GASTRIC DISORDER [None]
  - HAEMATOMA [None]
  - HYPERCHOLESTEROLAEMIA [None]
  - HYPONATRAEMIA [None]
  - IMPETIGO [None]
  - IMPLANT SITE REACTION [None]
  - LOBAR PNEUMONIA [None]
  - MENISCUS LESION [None]
  - OEDEMA PERIPHERAL [None]
  - PNEUMONIA [None]
  - THERAPEUTIC AGENT TOXICITY [None]
  - VENTRICULAR DYSFUNCTION [None]
